FAERS Safety Report 8503198-9 (Version None)
Quarter: 2012Q2

REPORT INFORMATION
  Report Type: 
  Country: None (occurrence: None)
  Receive Date: 20120629
  Receipt Date: 20120619
  Transmission Date: 20120825
  Serious: Yes (Other)
  Sender: FDA-Public Use
  Company Number: DSA_58145_2012

PATIENT

DRUGS (3)
  1. FLUOROURACIL [Suspect]
     Indication: COLORECTAL CANCER
     Dosage: 450 MG/M2, WEEKLY, INTRAVENOUS BOLUS
     Route: 040
  2. LEUCOVORIN CALCIUM [Suspect]
     Indication: COLORECTAL CANCER
     Dosage: 100 MG/M2, WEEKLY, INTRAVENOUS
     Route: 042
  3. GEMCITABINE [Suspect]
     Indication: COLORECTAL CANCER
     Dosage: 900 MG/M2, WEEKLY, INTRAVENOUS
     Route: 042

REACTIONS (1)
  - LEUKOPENIA [None]
